FAERS Safety Report 5972953-1 (Version None)
Quarter: 2008Q4

REPORT INFORMATION
  Report Type: 
  Country: None (occurrence: None)
  Receive Date: 20081201
  Receipt Date: 20081124
  Transmission Date: 20090506
  Serious: Yes (Hospitalization)
  Sender: FDA-Public Use
  Company Number: PHHY2008TR27690

PATIENT
  Sex: Female
  Weight: 45 kg

DRUGS (3)
  1. EXJADE [Suspect]
     Indication: CONGENITAL NEUROLOGICAL DEGENERATION
     Dosage: 20 MG/KG
     Route: 048
     Dates: start: 20081023, end: 20081028
  2. EXJADE [Suspect]
     Indication: IRON OVERLOAD
  3. ANTICONVULSIVE MEDICATION [Concomitant]

REACTIONS (1)
  - ENCEPHALOPATHY [None]
